FAERS Safety Report 25116481 (Version 1)
Quarter: 2025Q1

REPORT INFORMATION
  Report Type: Spontaneous
  Country: TR (occurrence: TR)
  Receive Date: 20250325
  Receipt Date: 20250325
  Transmission Date: 20250409
  Serious: Yes (Hospitalization, Other)
  Sender: NOVO NORDISK
  Company Number: TR-NOVOPROD-1392250

PATIENT
  Age: 386 Month
  Sex: Male
  Weight: 55 kg

DRUGS (7)
  1. LANTUS [Concomitant]
     Active Substance: INSULIN GLARGINE
     Indication: Product used for unknown indication
     Dosage: 24 IU, QD
  2. MYFORTIC [Concomitant]
     Active Substance: MYCOPHENOLATE SODIUM
     Indication: Product used for unknown indication
     Dosage: 720 MG, BID
  3. ACTRAPID [Suspect]
     Active Substance: INSULIN HUMAN
     Indication: Type 1 diabetes mellitus
     Dosage: 10 IU, TID
  4. VALCYTE [Concomitant]
     Active Substance: VALGANCICLOVIR HYDROCHLORIDE
     Indication: Product used for unknown indication
     Dosage: 450 MG, BID
  5. PROGRAF [Concomitant]
     Active Substance: TACROLIMUS
  6. PROGRAF [Concomitant]
     Active Substance: TACROLIMUS
     Indication: Product used for unknown indication
     Dosage: 0.5 MG, BID
  7. PROGRAF [Concomitant]
     Active Substance: TACROLIMUS
     Dosage: 5 MG, BID

REACTIONS (2)
  - Renal failure [Unknown]
  - Dialysis [Unknown]
